FAERS Safety Report 13860097 (Version 4)
Quarter: 2018Q1

REPORT INFORMATION
  Report Type: Report from Study
  Country: US (occurrence: US)
  Receive Date: 20170811
  Receipt Date: 20180309
  Transmission Date: 20180508
  Serious: Yes (Hospitalization)
  Sender: FDA-Public Use
  Company Number: US-JNJFOC-20170809742

PATIENT
  Age: 69 Year
  Sex: Female
  Weight: 58.5 kg

DRUGS (12)
  1. LEVOTHYROXINE. [Concomitant]
     Active Substance: LEVOTHYROXINE
  2. EZETIMIBE. [Concomitant]
     Active Substance: EZETIMIBE
  3. IBRUTINIB [Suspect]
     Active Substance: IBRUTINIB
     Indication: CHRONIC LYMPHOCYTIC LEUKAEMIA
     Route: 048
     Dates: start: 20170531
  4. PITAVASTATIN. [Concomitant]
     Active Substance: PITAVASTATIN CALCIUM
  5. ALLOPURINOL. [Concomitant]
     Active Substance: ALLOPURINOL
  6. LOSARTAN. [Concomitant]
     Active Substance: LOSARTAN
  7. CHOLECALCIFEROL [Concomitant]
     Active Substance: CHOLECALCIFEROL
  8. CYANOCOBALAMIN. [Concomitant]
     Active Substance: CYANOCOBALAMIN
  9. TRAMADOL. [Concomitant]
     Active Substance: TRAMADOL
  10. LENALIDOMIDE [Suspect]
     Active Substance: LENALIDOMIDE
     Indication: CHRONIC LYMPHOCYTIC LEUKAEMIA
     Dosage: 2.5 MG, ON DAYS 1-7
     Route: 048
     Dates: start: 20170628
  11. LENALIDOMIDE [Suspect]
     Active Substance: LENALIDOMIDE
     Indication: CHRONIC LYMPHOCYTIC LEUKAEMIA
     Dosage: 5MG, ON DAY 8-28
     Route: 048
     Dates: start: 20170705
  12. ASPIRIN. [Concomitant]
     Active Substance: ASPIRIN

REACTIONS (12)
  - Atrioventricular block complete [Recovered/Resolved]
  - Respiratory failure [Recovered/Resolved]
  - Myocardial infarction [Not Recovered/Not Resolved]
  - Cardiac arrest [Recovered/Resolved]
  - Hyperuricaemia [Recovered/Resolved]
  - Dehydration [Recovered/Resolved]
  - Myocarditis [Not Recovered/Not Resolved]
  - Acute kidney injury [Not Recovered/Not Resolved]
  - Atrioventricular block second degree [Recovered/Resolved]
  - Troponin I increased [Recovered/Resolved]
  - Large intestinal haemorrhage [Not Recovered/Not Resolved]
  - Acute kidney injury [Recovered/Resolved]

NARRATIVE: CASE EVENT DATE: 20170712
